FAERS Safety Report 16748436 (Version 1)
Quarter: 2019Q3

REPORT INFORMATION
  Report Type: Spontaneous
  Country: US (occurrence: US)
  Receive Date: 20190828
  Receipt Date: 20190828
  Transmission Date: 20191005
  Serious: Yes (Hospitalization)
  Sender: FDA-Public Use
  Company Number: US-NEXUS PHARMA-000005

PATIENT
  Age: 36 Year
  Sex: Male

DRUGS (1)
  1. DICYCLOVERINE [Suspect]
     Active Substance: DICYCLOMINE HYDROCHLORIDE
     Indication: PRODUCT USED FOR UNKNOWN INDICATION
     Dosage: STRENGTH: 20 MG/2 ML
     Route: 042

REACTIONS (3)
  - Complex regional pain syndrome [Unknown]
  - Incorrect route of product administration [Unknown]
  - Thrombophlebitis [Unknown]
